FAERS Safety Report 15150155 (Version 3)
Quarter: 2019Q1

REPORT INFORMATION
  Report Type: Spontaneous
  Country: CA (occurrence: CA)
  Receive Date: 20180716
  Receipt Date: 20190123
  Transmission Date: 20190417
  Serious: Yes (Death, Life-Threatening, Hospitalization, Other)
  Sender: FDA-Public Use
  Company Number: CA-OTSUKA-2018_021733

PATIENT
  Age: 58 Year
  Sex: Male

DRUGS (8)
  1. CYTARABINE. [Suspect]
     Active Substance: CYTARABINE
     Indication: ACUTE MYELOID LEUKAEMIA
     Dosage: UNK
     Route: 037
  2. METHYLPREDNISOLONE. [Suspect]
     Active Substance: METHYLPREDNISOLONE
     Indication: GRAFT VERSUS HOST DISEASE
     Dosage: 1 MG/KG, UNK
     Route: 065
  3. DAPSONE. [Concomitant]
     Active Substance: DAPSONE
     Indication: ANTIFUNGAL PROPHYLAXIS
     Dosage: UNK
     Route: 065
  4. FLUDARABINE PHOSPHATE. [Suspect]
     Active Substance: FLUDARABINE PHOSPHATE
     Indication: ACUTE MYELOID LEUKAEMIA
     Dosage: UNK
     Route: 065
  5. BUSULFEX [Suspect]
     Active Substance: BUSULFAN
     Indication: ACUTE MYELOID LEUKAEMIA
     Dosage: UNK
     Route: 065
  6. GANCICLOVIR. [Concomitant]
     Active Substance: GANCICLOVIR
     Indication: PRODUCT USED FOR UNKNOWN INDICATION
     Dosage: POWDER FOR SOLUTION INTRAVENOUS
     Route: 065
  7. DAUNORUBICIN HYDROCHLORIDE. [Suspect]
     Active Substance: DAUNORUBICIN HYDROCHLORIDE
     Indication: ACUTE MYELOID LEUKAEMIA
     Dosage: UNK
     Route: 065
  8. CICLOSPORIN [Concomitant]
     Active Substance: CYCLOSPORINE
     Indication: GRAFT VERSUS HOST DISEASE
     Dosage: UNK
     Route: 065

REACTIONS (18)
  - Cognitive disorder [Fatal]
  - Multiple organ dysfunction syndrome [Fatal]
  - Shock [Fatal]
  - Pneumonia cytomegaloviral [Fatal]
  - Leukoencephalopathy [Fatal]
  - Pyrexia [Fatal]
  - Lung consolidation [Fatal]
  - Cerebral toxoplasmosis [Fatal]
  - Cerebral ischaemia [Fatal]
  - Diffuse alveolar damage [Fatal]
  - Respiratory failure [Fatal]
  - Cytomegalovirus viraemia [Fatal]
  - Encephalitis [Fatal]
  - Infection reactivation [Fatal]
  - Hypotension [Fatal]
  - Computerised tomogram thorax abnormal [Fatal]
  - Toxoplasmosis [Fatal]
  - Mobility decreased [Fatal]
